FAERS Safety Report 5154634-X (Version None)
Quarter: 2006Q4

REPORT INFORMATION
  Report Type: 
  Country: None (occurrence: None)
  Receive Date: 20061113
  Receipt Date: 20061030
  Transmission Date: 20070319
  Serious: Yes (Other)
  Sender: FDA-Public Use
  Company Number: 2006129495

PATIENT
  Age: 24 Year
  Sex: Male

DRUGS (2)
  1. ZARONTIN [Suspect]
     Indication: EPILEPSY
     Dosage: 1500 MG (750 MG,2 IN 1 D), ORAL
     Route: 048
  2. TOPIRAMATE [Concomitant]

REACTIONS (6)
  - AGGRESSION [None]
  - DIZZINESS [None]
  - HEADACHE [None]
  - PERSONALITY CHANGE [None]
  - PHARMACEUTICAL PRODUCT COMPLAINT [None]
  - STEREOTYPY [None]
